FAERS Safety Report 6189605-8 (Version None)
Quarter: 2009Q2

REPORT INFORMATION
  Report Type: 
  Country: None (occurrence: None)
  Receive Date: 20090512
  Receipt Date: 20090512
  Transmission Date: 20091009
  Serious: Yes (Other)
  Sender: FDA-Public Use
  Company Number: None

PATIENT
  Age: 29 Year
  Sex: Male
  Weight: 61.2356 kg

DRUGS (4)
  1. PULMICORT FLEXHALER [Suspect]
     Indication: ASTHMA
     Dosage: 1 PUFF 2X/DAY PO
     Route: 048
     Dates: start: 20080812, end: 20090511
  2. FEXFENADINE HCL [Concomitant]
  3. FLUTICASONE PROPIONATE [Concomitant]
  4. PROAIR HFA [Concomitant]

REACTIONS (1)
  - VISUAL IMPAIRMENT [None]
